FAERS Safety Report 5070172-7 (Version None)
Quarter: 2006Q3

REPORT INFORMATION
  Report Type: 
  Country: None (occurrence: None)
  Receive Date: 20060802
  Receipt Date: 20060802
  Transmission Date: 20061208
  Serious: Yes (Death, Life-Threatening, Hospitalization)
  Sender: FDA-Public Use
  Company Number: None

PATIENT
  Sex: Male
  Weight: 72.5755 kg

DRUGS (1)
  1. ZOSYN [Suspect]
     Indication: DRUG USE FOR UNKNOWN INDICATION
     Dosage: 2.5, 3.75, 4.5 INJECTION
     Dates: start: 20050707, end: 20050826

REACTIONS (4)
  - CONTRAINDICATION TO MEDICAL TREATMENT [None]
  - DRUG HYPERSENSITIVITY [None]
  - MULTI-ORGAN FAILURE [None]
  - SWELLING [None]
